FAERS Safety Report 4635233-2 (Version None)
Quarter: 2005Q2

REPORT INFORMATION
  Report Type: 
  Country: None (occurrence: None)
  Receive Date: 20050411
  Receipt Date: 20050325
  Transmission Date: 20051028
  Serious: Yes (Other)
  Sender: FDA-Public Use
  Company Number: A-US2005-08955

PATIENT
  Age: 68 Year
  Sex: Female
  Weight: 57.6 kg

DRUGS (15)
  1. TRACLEER [Suspect]
     Indication: PULMONARY HYPERTENSION
     Dosage: SEE IMAGE
     Route: 048
     Dates: start: 20040220, end: 20040426
  2. TRACLEER [Suspect]
     Indication: PULMONARY HYPERTENSION
     Dosage: SEE IMAGE
     Route: 048
     Dates: start: 20040427, end: 20050119
  3. ARAVA [Suspect]
  4. REMODULIN [Concomitant]
  5. PREDNISONE [Concomitant]
  6. LASIX [Concomitant]
  7. ALDACTONE [Concomitant]
  8. LEVOTHYROXINE SODIUM [Concomitant]
  9. COUMADIN [Concomitant]
  10. PROZAC [Concomitant]
  11. FOLVITE (FOLIC ACID) [Concomitant]
  12. POTASSIUM ACETATE [Concomitant]
  13. FLEXERIL [Concomitant]
  14. OXYCODONE SR (OXYCODONE) [Concomitant]
  15. BELLERGAL (BELLADONNA ALKALOIDS, ERGOTAMINE TARTRATE) [Concomitant]

REACTIONS (4)
  - ALANINE AMINOTRANSFERASE INCREASED [None]
  - ASPARTATE AMINOTRANSFERASE INCREASED [None]
  - BLOOD ALKALINE PHOSPHATASE INCREASED [None]
  - BLOOD BILIRUBIN INCREASED [None]
